FAERS Safety Report 22634263 (Version 1)
Quarter: 2023Q2

REPORT INFORMATION
  Report Type: Spontaneous
  Country: FR (occurrence: FR)
  Receive Date: 20230623
  Receipt Date: 20230623
  Transmission Date: 20230721
  Serious: Yes (Death, Congenital Anomaly)
  Sender: FDA-Public Use
  Company Number: None

PATIENT
  Sex: Female

DRUGS (1)
  1. OXYBUTYNIN CHLORIDE [Suspect]
     Active Substance: OXYBUTYNIN CHLORIDE
     Indication: Urinary incontinence
     Route: 064
     Dates: start: 20211110, end: 20220314

REACTIONS (6)
  - Anorectal malformation [Fatal]
  - Oligohydramnios [Fatal]
  - Renal aplasia [Fatal]
  - Congenital uterine anomaly [Fatal]
  - Talipes [Fatal]
  - Congenital musculoskeletal disorder of spine [Fatal]

NARRATIVE: CASE EVENT DATE: 20220301
